FAERS Safety Report 8905629 (Version 2)
Quarter: 2013Q1

REPORT INFORMATION
  Report Type: Spontaneous
  Country: IT (occurrence: IT)
  Receive Date: 20121113
  Receipt Date: 20130102
  Transmission Date: 20140127
  Serious: Yes (Life-Threatening, Hospitalization)
  Sender: FDA-Public Use
  Company Number: IT-ABBOTT-12P-083-1005873-00

PATIENT
  Age: 36 Year
  Sex: Female

DRUGS (10)
  1. DEPAKIN [Suspect]
     Indication: BIPOLAR DISORDER
     Dosage: 30 UNITS DAILY (TOTAL) 29.5/0.5MG
     Route: 048
     Dates: start: 20121105, end: 20121105
  2. EN [Suspect]
     Indication: BIPOLAR DISORDER
     Dosage: 29.5 MG DAILY (TOTAL)
     Route: 048
     Dates: start: 20121105, end: 20121105
  3. FLUOXETINE [Suspect]
     Indication: BIPOLAR DISORDER
     Dosage: 280 MG DAILY (TOTAL)
     Route: 048
     Dates: start: 20121105, end: 20121105
  4. VENLAFAXINE [Suspect]
     Indication: BIPOLAR DISORDER
     Dosage: 2475 MG DAILY (TOTAL)
     Route: 048
     Dates: start: 20121105, end: 20121105
  5. DEXIBUPROFEN [Suspect]
     Indication: SUICIDE ATTEMPT
     Dosage: 2400 MG DAILY (TOTAL)
     Route: 048
     Dates: start: 20121105, end: 20121105
  6. LORNOXICAM [Suspect]
     Indication: SUICIDE ATTEMPT
     Dosage: 160 MG DAILY (TOTAL)
     Route: 048
     Dates: start: 20121105, end: 20121105
  7. SEROQUEL [Suspect]
     Indication: BIPOLAR DISORDER
     Dosage: 20 UNITS DAILY (TOTAL)
     Route: 048
     Dates: start: 20121105, end: 20121105
  8. TACHIPIRINA [Suspect]
     Indication: SUICIDE ATTEMPT
     Dosage: 20 UNITS DAILY (TOTAL)
     Route: 048
     Dates: start: 20121105, end: 20121105
  9. ZERINOL [Suspect]
     Indication: SUICIDE ATTEMPT
     Dosage: 6 UNITS DAILY (TOTAL)
     Route: 048
     Dates: start: 20121105, end: 20121105
  10. MOMENT [Suspect]
     Indication: SUICIDE ATTEMPT
     Dosage: 6 UNITS DAILY (TOTAL)
     Route: 048
     Dates: start: 20121105, end: 20121105

REACTIONS (7)
  - Respiratory failure [Recovering/Resolving]
  - Hypotension [Recovering/Resolving]
  - Suicide attempt [Recovering/Resolving]
  - Long QT syndrome [Recovering/Resolving]
  - Tachycardia [Recovering/Resolving]
  - Sopor [Recovering/Resolving]
  - Tachypnoea [Recovering/Resolving]
